FAERS Safety Report 25412820 (Version 2)
Quarter: 2025Q2

REPORT INFORMATION
  Report Type: Spontaneous
  Country: US (occurrence: US)
  Receive Date: 20250609
  Receipt Date: 20250623
  Transmission Date: 20250717
  Serious: Yes (Hospitalization, Other)
  Sender: IBSA INSTITUT BIOCHIMIQUE
  Company Number: US-IBSA PHARMA INC.-2025IBS000363

PATIENT

DRUGS (2)
  1. TIROSINT [Suspect]
     Active Substance: LEVOTHYROXINE SODIUM
     Indication: Autoimmune thyroiditis
  2. TIROSINT [Suspect]
     Active Substance: LEVOTHYROXINE SODIUM
     Indication: Thyroid hormone replacement therapy

REACTIONS (16)
  - Hospitalisation [Unknown]
  - Syncope [Unknown]
  - Vagus nerve disorder [Unknown]
  - Hypoacusis [Unknown]
  - Temperature regulation disorder [Unknown]
  - Sleep disorder [Unknown]
  - Visual impairment [Unknown]
  - Skin disorder [Unknown]
  - Illness [Unknown]
  - Thyroid disorder [Unknown]
  - Heart rate increased [Unknown]
  - Weight decreased [Unknown]
  - Product physical issue [Unknown]
  - Product packaging difficult to open [Unknown]
  - Product temperature excursion issue [Unknown]
  - Poor quality product administered [Unknown]

NARRATIVE: CASE EVENT DATE: 20230101
